FAERS Safety Report 9337509 (Version 4)
Quarter: 2013Q3

REPORT INFORMATION
  Report Type: Report from Study
  Country: US (occurrence: US)
  Receive Date: 20130607
  Receipt Date: 20130916
  Transmission Date: 20140515
  Serious: Yes (Life-Threatening, Hospitalization, Disabling)
  Sender: FDA-Public Use
  Company Number: US-ACTELION-A-NJ2013-84179

PATIENT
  Age: 37 Year
  Sex: Female

DRUGS (3)
  1. TRACLEER [Suspect]
     Indication: PULMONARY ARTERIAL HYPERTENSION
     Dosage: UNK
     Route: 048
     Dates: start: 2011
  2. ADCIRCA [Concomitant]
  3. TYVASO [Concomitant]

REACTIONS (5)
  - Systemic lupus erythematosus [Recovering/Resolving]
  - Acute respiratory distress syndrome [Recovering/Resolving]
  - Respiratory failure [Recovering/Resolving]
  - Mechanical ventilation [Recovering/Resolving]
  - Pneumonia [Recovering/Resolving]
